FAERS Safety Report 7503944-7 (Version None)
Quarter: 2011Q2

REPORT INFORMATION
  Report Type: 
  Country: None (occurrence: None)
  Receive Date: 20110518
  Receipt Date: 20110505
  Transmission Date: 20111010
  Serious: Yes (Hospitalization)
  Sender: FDA-Public Use
  Company Number: TPA2011A02263

PATIENT
  Age: 89 Year
  Sex: Female

DRUGS (17)
  1. ACETAMINOPHEN AND TRAMADOL HCL [Concomitant]
  2. BUFLOMEDIL (BUFLOMEDIL) [Concomitant]
  3. FUROSEMIDE [Concomitant]
  4. PENTOXIFYLLINE [Concomitant]
  5. PYOSTACINE (PRISTINAMYCIN) [Suspect]
     Indication: PRODUCT USED FOR UNKNOWN INDICATION
     Dosage: 2 GM (2 GM, 1 IN 1 D), ORAL
     Route: 048
     Dates: start: 20110209, end: 20110309
  6. ASPIRIN [Concomitant]
  7. NITRIDERM (GLYCERYL TRINITRATE) [Concomitant]
  8. NOVOMIX (INSULIN ASPART) [Concomitant]
  9. KESTIN (EBASTINE) [Concomitant]
  10. NEXIUM [Concomitant]
  11. PLAVIX [Concomitant]
  12. BISOPROLOL FUMARATE [Concomitant]
  13. INSULATARD NPH HUMAN [Concomitant]
  14. ADENURIC (FEBUXOSTAT) [Suspect]
     Indication: HYPERURICAEMIA
     Dosage: 80 MG (80 MG, 1-2)  ORAL
     Route: 048
     Dates: start: 20110209, end: 20110309
  15. IKOREL (NICORANDIL) [Concomitant]
  16. TRIMETAZIDINE (TRIMETAZIDINE) [Concomitant]
  17. LORAZEPAM [Concomitant]

REACTIONS (3)
  - RASH MACULO-PAPULAR [None]
  - PSORIASIS [None]
  - ECZEMA [None]
